FAERS Safety Report 21176324 (Version 1)
Quarter: 2022Q3

REPORT INFORMATION
  Report Type: Spontaneous
  Country: US (occurrence: US)
  Receive Date: 20220805
  Receipt Date: 20220805
  Transmission Date: 20221026
  Serious: No
  Sender: FDA-Public Use
  Company Number: US-NEURELIS, INC.-2022NEU000042

PATIENT

DRUGS (2)
  1. VALTOCO [Suspect]
     Active Substance: DIAZEPAM
     Indication: Accidental exposure to product
     Dosage: NA
  2. LEXAPRO [Concomitant]
     Active Substance: ESCITALOPRAM OXALATE
     Indication: Product used for unknown indication
     Dosage: 10 MILLIGRAM, QD
     Route: 048

REACTIONS (6)
  - Dizziness [Unknown]
  - Fatigue [Unknown]
  - Pupillary reflex impaired [Unknown]
  - Headache [Unknown]
  - Sedation [Unknown]
  - Accidental exposure to product [Unknown]

NARRATIVE: CASE EVENT DATE: 20220513
